FAERS Safety Report 13022580 (Version 2)
Quarter: 2017Q1

REPORT INFORMATION
  Report Type: Spontaneous
  Country: IT (occurrence: IT)
  Receive Date: 20161213
  Receipt Date: 20170210
  Transmission Date: 20170428
  Serious: Yes (Other)
  Sender: FDA-Public Use
  Company Number: IT-TEVA-718058ACC

PATIENT
  Age: 52 Year
  Sex: Female
  Weight: 54 kg

DRUGS (3)
  1. PACLITAXEL KABI - 6 MG/ML CONCENTRATO PER SOLUZIONE PER INFUSIONE [Interacting]
     Active Substance: PACLITAXEL
     Indication: FALLOPIAN TUBE NEOPLASM
     Dates: start: 20160726
  2. AVASTIN [Interacting]
     Active Substance: BEVACIZUMAB
     Indication: FALLOPIAN TUBE NEOPLASM
     Route: 042
     Dates: start: 20160726
  3. CARBOPLATINO TEVA - 10 MG/ML - TEVA PHARMA B.V. [Suspect]
     Active Substance: CARBOPLATIN
     Indication: FALLOPIAN TUBE NEOPLASM
     Route: 042
     Dates: start: 20160726

REACTIONS (3)
  - Leukopenia [Recovered/Resolved]
  - Neutropenia [Recovered/Resolved]
  - Drug interaction [Unknown]

NARRATIVE: CASE EVENT DATE: 20161028
